FAERS Safety Report 17031340 (Version 1)
Quarter: 2019Q4

REPORT INFORMATION
  Report Type: Spontaneous
  Country: US (occurrence: US)
  Receive Date: 20191114
  Receipt Date: 20191114
  Transmission Date: 20200122
  Serious: Yes (Other)
  Sender: FDA-Public Use
  Company Number: US-ROCHE-2366827

PATIENT
  Age: 66 Year
  Sex: Female
  Weight: 68.1 kg

DRUGS (2)
  1. ERIVEDGE [Suspect]
     Active Substance: VISMODEGIB
     Indication: BASAL CELL CARCINOMA
     Route: 048
     Dates: start: 20190323, end: 20190701
  2. LISINOPRIL. [Concomitant]
     Active Substance: LISINOPRIL
     Indication: HYPERTENSION
     Route: 048
     Dates: start: 201910

REACTIONS (10)
  - Pruritus [Unknown]
  - Alopecia [Not Recovered/Not Resolved]
  - Blood cholesterol increased [Unknown]
  - Ill-defined disorder [Unknown]
  - Madarosis [Not Recovered/Not Resolved]
  - Muscle spasms [Recovered/Resolved]
  - Nausea [Recovered/Resolved]
  - Rash [Unknown]
  - Type 2 diabetes mellitus [Not Recovered/Not Resolved]
  - Face injury [Unknown]

NARRATIVE: CASE EVENT DATE: 20190323
